FAERS Safety Report 5611932-0 (Version None)
Quarter: 2008Q1

REPORT INFORMATION
  Report Type: 
  Country: None (occurrence: None)
  Receive Date: 20080204
  Receipt Date: 20080129
  Transmission Date: 20080703
  Serious: Yes (Death)
  Sender: FDA-Public Use
  Company Number: US-JNJFOC-20071107411

PATIENT
  Sex: Female

DRUGS (2)
  1. REOPRO [Suspect]
     Indication: ACUTE MYOCARDIAL INFARCTION
  2. ANGIOMAX [Concomitant]
     Indication: ACUTE MYOCARDIAL INFARCTION

REACTIONS (2)
  - PULMONARY ALVEOLAR HAEMORRHAGE [None]
  - SHOCK [None]
